FAERS Safety Report 8336916-3 (Version None)
Quarter: 2012Q2

REPORT INFORMATION
  Report Type: 
  Country: None (occurrence: None)
  Receive Date: 20120504
  Receipt Date: 20120425
  Transmission Date: 20120825
  Serious: Yes (Hospitalization, Other)
  Sender: FDA-Public Use
  Company Number: DE-ABBOTT-11P-062-0854725-00

PATIENT
  Sex: Female
  Weight: 60 kg

DRUGS (4)
  1. PREDNISONE [Concomitant]
     Indication: CROHN'S DISEASE
     Dates: start: 20010101
  2. HUMIRA [Suspect]
     Indication: CROHN'S DISEASE
     Route: 058
     Dates: start: 20080417, end: 20080417
  3. HUMIRA [Suspect]
     Route: 058
     Dates: start: 20080501, end: 20110904
  4. MESALAMINE [Concomitant]
     Indication: CROHN'S DISEASE
     Dates: start: 19910101

REACTIONS (1)
  - JEJUNAL PERFORATION [None]
